FAERS Safety Report 4667551-6 (Version None)
Quarter: 2005Q2

REPORT INFORMATION
  Report Type: 
  Country: None (occurrence: None)
  Receive Date: 20050520
  Receipt Date: 20041115
  Transmission Date: 20051028
  Serious: Yes (Other)
  Sender: FDA-Public Use
  Company Number: PHEH2004US12405

PATIENT
  Age: 52 Year
  Sex: Female
  Weight: 56 kg

DRUGS (3)
  1. ZOMETA [Suspect]
     Indication: BREAST CANCER METASTATIC
     Dosage: 4MG Q4W
     Route: 042
     Dates: start: 20030917, end: 20040805
  2. TAXOL W/CARBOPLATIN [Concomitant]
     Dates: start: 20030801, end: 20040128
  3. HERCEPTIN [Concomitant]
     Dates: start: 20030917, end: 20041028

REACTIONS (6)
  - ABSCESS ORAL [None]
  - ACTINOMYCOSIS [None]
  - INFECTION [None]
  - OSTEONECROSIS [None]
  - PAIN IN JAW [None]
  - SWELLING [None]
